FAERS Safety Report 23020185 (Version 1)
Quarter: 2023Q4

REPORT INFORMATION
  Report Type: Spontaneous
  Country: PT (occurrence: PT)
  Receive Date: 20231003
  Receipt Date: 20231003
  Transmission Date: 20240110
  Serious: Yes (Hospitalization, Other)
  Sender: FDA-Public Use
  Company Number: PT-EMA-DD-20230627-7207890-104827

PATIENT
  Age: 54 Year
  Sex: Female

DRUGS (1)
  1. FLUOXETINE [Suspect]
     Active Substance: FLUOXETINE HYDROCHLORIDE
     Indication: Product used for unknown indication

REACTIONS (8)
  - Hyponatraemia [Recovered/Resolved]
  - Polydipsia [Recovered/Resolved]
  - Fall [Unknown]
  - Blood pressure orthostatic decreased [Unknown]
  - Dizziness [Unknown]
  - Psychomotor retardation [Unknown]
  - Blood pressure decreased [Unknown]
  - Diabetes insipidus [Recovered/Resolved]
